FAERS Safety Report 20313019 (Version 1)
Quarter: 2022Q1

REPORT INFORMATION
  Report Type: Spontaneous
  Country: DE (occurrence: DE)
  Receive Date: 20220109
  Receipt Date: 20220109
  Transmission Date: 20220423
  Serious: Yes (Other)
  Sender: FDA-Public Use
  Company Number: DE-TEVA-2018-DE-898922

PATIENT
  Age: 66 Year
  Sex: Male

DRUGS (22)
  1. IRINOTECAN [Suspect]
     Active Substance: IRINOTECAN
     Indication: Metastases to liver
     Dosage: UNK UNK, 1CYCLICAL
     Route: 065
  2. IRINOTECAN [Suspect]
     Active Substance: IRINOTECAN
     Indication: Rectal adenocarcinoma
     Dosage: UNK UNK,2 CYCLICAL
     Route: 065
  3. IRINOTECAN [Suspect]
     Active Substance: IRINOTECAN
     Indication: Colorectal cancer metastatic
     Dosage: UNK UNK, 3CYCLICAL
     Route: 065
  4. IRINOTECAN [Suspect]
     Active Substance: IRINOTECAN
     Indication: Adenocarcinoma
     Dosage: UNK
     Route: 065
  5. LEUCOVORIN [Suspect]
     Active Substance: LEUCOVORIN
     Indication: Metastases to liver
     Dosage: UNK UNK, 1CYCLICAL
     Route: 065
  6. LEUCOVORIN [Suspect]
     Active Substance: LEUCOVORIN
     Indication: Rectal adenocarcinoma
     Dosage: UNK UNK,2 CYCLICAL
     Route: 065
  7. LEUCOVORIN [Suspect]
     Active Substance: LEUCOVORIN
     Indication: Colorectal cancer metastatic
     Dosage: UNK UNK, 3CYCLICAL
     Route: 065
  8. LEUCOVORIN [Suspect]
     Active Substance: LEUCOVORIN
     Dosage: UNK
     Route: 065
  9. BEVACIZUMAB [Suspect]
     Active Substance: BEVACIZUMAB
     Indication: Colorectal cancer metastatic
     Dosage: UNK
     Route: 065
  10. BEVACIZUMAB [Suspect]
     Active Substance: BEVACIZUMAB
     Indication: Colorectal cancer metastatic
  11. CETUXIMAB [Suspect]
     Active Substance: CETUXIMAB
     Indication: Metastases to liver
     Dosage: UNK UNK, 1CYCLICAL
     Route: 065
  12. CETUXIMAB [Suspect]
     Active Substance: CETUXIMAB
     Indication: Rectal adenocarcinoma
     Dosage: UNK UNK,3 CYCLICAL
     Route: 065
  13. CETUXIMAB [Suspect]
     Active Substance: CETUXIMAB
     Dosage: UNK UNK, 4CYCLICAL
     Route: 065
  14. CETUXIMAB [Suspect]
     Active Substance: CETUXIMAB
     Dosage: UNK UNK, 6CYCLICAL
     Route: 065
  15. CETUXIMAB [Suspect]
     Active Substance: CETUXIMAB
     Dosage: UNK UNK, 6CYCLICAL
     Route: 065
  16. CETUXIMAB [Suspect]
     Active Substance: CETUXIMAB
     Dosage: UNK
     Route: 065
  17. FLUOROURACIL [Suspect]
     Active Substance: FLUOROURACIL
     Indication: Metastases to liver
     Dosage: UNK
     Route: 065
  18. FLUOROURACIL [Suspect]
     Active Substance: FLUOROURACIL
     Indication: Colorectal cancer metastatic
  19. FLUOROURACIL [Suspect]
     Active Substance: FLUOROURACIL
     Indication: Rectal adenocarcinoma
  20. OXALIPLATIN [Suspect]
     Active Substance: OXALIPLATIN
     Indication: Metastases to liver
     Dosage: UNK
     Route: 065
  21. OXALIPLATIN [Suspect]
     Active Substance: OXALIPLATIN
     Indication: Rectal adenocarcinoma
  22. OXALIPLATIN [Suspect]
     Active Substance: OXALIPLATIN
     Indication: Colorectal cancer metastatic

REACTIONS (5)
  - Drug resistance [Unknown]
  - Skin toxicity [Unknown]
  - Multiple-drug resistance [Unknown]
  - Rectal adenocarcinoma [Unknown]
  - Malignant neoplasm progression [Unknown]
